FAERS Safety Report 9334475 (Version 1)
Quarter: 2013Q2

REPORT INFORMATION
  Report Type: Spontaneous
  Country: US (occurrence: US)
  Receive Date: 20130606
  Receipt Date: 20130606
  Transmission Date: 20140414
  Serious: No
  Sender: FDA-Public Use
  Company Number: US-AMGEN-USASP2012080759

PATIENT
  Age: 74 Year
  Sex: Female
  Weight: 63.04 kg

DRUGS (5)
  1. PROLIA [Suspect]
     Indication: OSTEOPOROSIS POSTMENOPAUSAL
     Dosage: 60 MG/ML, Q6MO
     Route: 030
     Dates: start: 20111027, end: 20121108
  2. SYNTHROID [Concomitant]
     Indication: HYPOTHYROIDISM
     Dosage: UNK UNK, QD
     Route: 048
  3. FEMRING [Concomitant]
     Dosage: UNK UNK, Q3MO
     Route: 067
  4. NAPROSYN                           /00256201/ [Concomitant]
     Indication: PAIN
     Dosage: UNK UNK, AS NECESSARY
     Route: 048
  5. VICODIN [Concomitant]
     Indication: PAIN
     Dosage: UNK UNK, AS NECESSARY
     Route: 048

REACTIONS (2)
  - Jaw disorder [Not Recovered/Not Resolved]
  - Tooth disorder [Not Recovered/Not Resolved]
